FAERS Safety Report 16405752 (Version 2)
Quarter: 2019Q2

REPORT INFORMATION
  Report Type: Spontaneous
  Country: VN (occurrence: VN)
  Receive Date: 20190607
  Receipt Date: 20190621
  Transmission Date: 20190711
  Serious: Yes (Hospitalization)
  Sender: FDA-Public Use
  Company Number: PHHY2019VN125994

PATIENT
  Age: 12 Year
  Sex: Male

DRUGS (4)
  1. DEFEROXAMINE [Suspect]
     Active Substance: DEFEROXAMINE\DEFEROXAMINE MESYLATE
     Indication: IRON OVERLOAD
     Dosage: UNK
     Route: 065
  2. INSULIN [Concomitant]
     Active Substance: INSULIN NOS
     Indication: DIABETES MELLITUS
  3. DEFERIPRONE [Concomitant]
     Active Substance: DEFERIPRONE
     Indication: IRON OVERLOAD
     Dosage: UNK
     Route: 065
  4. INSULIN [Concomitant]
     Active Substance: INSULIN NOS
     Indication: BLOOD GLUCOSE INCREASED
     Dosage: UNK
     Route: 065

REACTIONS (16)
  - Fatigue [Unknown]
  - Cardiac failure [Unknown]
  - Blood glucose fluctuation [Unknown]
  - Pyrexia [Unknown]
  - Dyspnoea [Unknown]
  - Productive cough [Unknown]
  - Generalised oedema [Unknown]
  - Breath sounds abnormal [Unknown]
  - Blood glucose decreased [Unknown]
  - Heart rate increased [Unknown]
  - Cardiac murmur [Unknown]
  - Pallor [Unknown]
  - Type 1 diabetes mellitus [Unknown]
  - Acute pulmonary oedema [Unknown]
  - Cough [Unknown]
  - Vomiting [Unknown]
